FAERS Safety Report 8805145 (Version 1)
Quarter: 2012Q4

REPORT INFORMATION
  Report Type: 
  Country: SE (occurrence: SE)
  Receive Date: 20120924
  Receipt Date: 20120924
  Transmission Date: 20130627
  Serious: Yes (Disabling)
  Sender: FDA-Public Use
  Company Number: SE-ASTRAZENECA-2012SE72172

PATIENT
  Age: 823 Month
  Sex: Female
  Weight: 60 kg

DRUGS (2)
  1. SELOKEN ZOC [Suspect]
     Indication: CARDIAC FLUTTER
     Route: 048
  2. SELOKEN ZOC [Suspect]
     Indication: CARDIAC FLUTTER
     Dosage: GENERIC BY RATIOPHARM
     Route: 048
     Dates: end: 201209

REACTIONS (1)
  - Visual impairment [Not Recovered/Not Resolved]
